FAERS Safety Report 19292188 (Version 2)
Quarter: 2021Q3

REPORT INFORMATION
  Report Type: Report from Study
  Country: None (occurrence: AR)
  Receive Date: 20210524
  Receipt Date: 20210719
  Transmission Date: 20211014
  Serious: Yes (Other)
  Sender: FDA-Public Use
  Company Number: AR-ABBVIE-21K-007-3917074-00

PATIENT
  Age: 72 Year
  Sex: Male

DRUGS (1)
  1. HUMIRA [Suspect]
     Active Substance: ADALIMUMAB
     Indication: CROHN^S DISEASE
     Route: 058
     Dates: start: 20181012

REACTIONS (3)
  - Nephrolithiasis [Recovering/Resolving]
  - Pneumonia [Recovered/Resolved]
  - Calculus prostatic [Recovered/Resolved]

NARRATIVE: CASE EVENT DATE: 20210421
